FAERS Safety Report 17152936 (Version 1)
Quarter: 2019Q4

REPORT INFORMATION
  Report Type: Spontaneous
  Country: CN (occurrence: CN)
  Receive Date: 20191213
  Receipt Date: 20191213
  Transmission Date: 20200122
  Serious: Yes (Hospitalization, Other)
  Sender: FDA-Public Use
  Company Number: CN-ASTRAZENECA-2019SF78616

PATIENT
  Age: 21586 Day
  Sex: Male
  Weight: 80 kg

DRUGS (4)
  1. BRILINTA [Suspect]
     Active Substance: TICAGRELOR
     Indication: ANTIPLATELET THERAPY
     Route: 048
     Dates: start: 20190213, end: 20191129
  2. BAYASPIRIN [Suspect]
     Active Substance: ASPIRIN
     Indication: ANTIPLATELET THERAPY
     Route: 048
     Dates: start: 20190213, end: 20191129
  3. CRESTOR [Concomitant]
     Active Substance: ROSUVASTATIN CALCIUM
     Indication: LIPIDS ABNORMAL
     Route: 048
     Dates: start: 20190213, end: 20191129
  4. BETALOC [Concomitant]
     Active Substance: METOPROLOL TARTRATE
     Indication: HEART RATE INCREASED
     Route: 048
     Dates: start: 20190213, end: 20191129

REACTIONS (4)
  - Viral hepatitis carrier [Recovering/Resolving]
  - Gastritis erosive [Recovering/Resolving]
  - Chronic gastritis [Recovering/Resolving]
  - Peptic ulcer haemorrhage [Recovering/Resolving]

NARRATIVE: CASE EVENT DATE: 20191127
